FAERS Safety Report 22521498 (Version 3)
Quarter: 2025Q3

REPORT INFORMATION
  Report Type: Spontaneous
  Country: EU (occurrence: EU)
  Receive Date: 20230605
  Receipt Date: 20250701
  Transmission Date: 20251021
  Serious: Yes (Other)
  Sender: SANOFI AVENTIS
  Company Number: EU-MYLANLABS-2023M1039793

PATIENT
  Age: 25 Year

DRUGS (11)
  1. ANTI-THYMOCYTE GLOBULIN (RABBIT) NOS [Suspect]
     Active Substance: LAPINE T-LYMPHOCYTE IMMUNE GLOBULIN
     Indication: Prophylaxis against graft versus host disease
  2. FLUDARABINE PHOSPHATE [Suspect]
     Active Substance: FLUDARABINE PHOSPHATE
     Indication: Allogenic stem cell transplantation
  3. FLUDARABINE PHOSPHATE [Suspect]
     Active Substance: FLUDARABINE PHOSPHATE
     Indication: Inflammatory bowel disease
  4. METHOTREXATE [Suspect]
     Active Substance: METHOTREXATE
     Indication: Prophylaxis against graft versus host disease
  5. RITUXIMAB [Suspect]
     Active Substance: RITUXIMAB
     Indication: Immunomodulatory therapy
     Dosage: 375 MG/M2, BID 1 MONTH PRIOR TO THE TRANSPLANT (750 MG/M2 TOTAL)
  6. CYCLOSPORINE [Suspect]
     Active Substance: CYCLOSPORINE
     Indication: Prophylaxis against graft versus host disease
  7. THIOTEPA [Suspect]
     Active Substance: THIOTEPA
     Indication: Allogenic stem cell transplantation
  8. THIOTEPA [Suspect]
     Active Substance: THIOTEPA
     Indication: Inflammatory bowel disease
  9. ABATACEPT [Suspect]
     Active Substance: ABATACEPT
     Indication: Immunomodulatory therapy
     Dosage: 10 MG/KG, QOW
     Route: 042
  10. TREOSULFAN [Suspect]
     Active Substance: TREOSULFAN
     Indication: Allogenic stem cell transplantation
  11. TREOSULFAN [Suspect]
     Active Substance: TREOSULFAN
     Indication: Inflammatory bowel disease

REACTIONS (11)
  - Pharyngeal ulceration [Recovered/Resolved]
  - Human herpesvirus 6 infection [Recovered/Resolved]
  - Candida infection [Recovered/Resolved]
  - Nausea [Recovered/Resolved]
  - Vomiting [Recovered/Resolved]
  - Oesophageal candidiasis [Recovered/Resolved]
  - Abdominal discomfort [Recovered/Resolved]
  - Gastritis [Recovered/Resolved]
  - Cytomegalovirus infection [Recovered/Resolved]
  - Parvovirus B19 infection [Recovered/Resolved]
  - Off label use [Unknown]
